FAERS Safety Report 8718799 (Version 4)
Quarter: 2013Q4

REPORT INFORMATION
  Report Type: Spontaneous
  Country: IT (occurrence: IT)
  Receive Date: 20120810
  Receipt Date: 20131101
  Transmission Date: 20140711
  Serious: No
  Sender: FDA-Public Use
  Company Number: IT-MERCK-1208ITA004353

PATIENT
  Age: 59 Year
  Sex: Male

DRUGS (13)
  1. TIENAM 500 MG+500 MG POLVERE PER SOLUZIONE PER INFUSIONE [Suspect]
     Indication: INFECTION
     Dosage: 1000MG/1000MG, QD
     Route: 042
     Dates: start: 20120625, end: 20120703
  2. NORMIX [Concomitant]
     Dosage: 6 DF, UNK
     Route: 048
     Dates: start: 20120702
  3. CLARITHROMYCIN [Concomitant]
     Dosage: 2 DF, UNK
     Route: 048
     Dates: start: 20120621
  4. BECOZYM [Concomitant]
     Dosage: 1 DF, UNK
     Route: 048
     Dates: start: 20120703
  5. LANTUS [Concomitant]
     Dosage: 10 DF, UNK
     Route: 058
     Dates: start: 20120625
  6. APIDRA [Concomitant]
     Dosage: 18 DF, UNK
     Route: 058
     Dates: start: 20120620
  7. ALBITAL [Concomitant]
     Dosage: 3 DF, UNK
     Route: 042
     Dates: start: 20120625
  8. ARANESP (DARBEPOETIN ALFA) [Concomitant]
     Dosage: 1 DF, UNK
     Route: 058
     Dates: start: 20120626, end: 20120626
  9. TRANSTEC [Concomitant]
     Dosage: 1 DF, UNK
     Route: 062
  10. DEURSIL [Concomitant]
     Dosage: 2 DF, UNK
     Route: 048
     Dates: start: 20120628
  11. KONAKION [Concomitant]
     Dosage: 4 DF, UNK
     Dates: start: 20120625
  12. CALCITRIOL [Concomitant]
     Dosage: 2 DF, UNK
     Route: 048
     Dates: start: 20120702
  13. LEDERFOLIN (LEUCOVORIN CALCIUM) [Concomitant]
     Dosage: 1 DF, UNK
     Route: 048
     Dates: start: 20120703

REACTIONS (2)
  - Bradykinesia [Recovered/Resolved]
  - Bradyphrenia [Recovered/Resolved]
